FAERS Safety Report 8908390 (Version 1)
Quarter: 2012Q4

REPORT INFORMATION
  Report Type: 
  Country: MX (occurrence: MX)
  Receive Date: 20121114
  Receipt Date: 20121114
  Transmission Date: 20130627
  Serious: Yes (Hospitalization)
  Sender: FDA-Public Use
  Company Number: PHHY2012MX104592

PATIENT
  Age: 69 Year
  Sex: Male

DRUGS (1)
  1. ONBREZ [Suspect]
     Indication: EMPHYSEMA
     Dosage: 300 ug, QD

REACTIONS (3)
  - Agitation [Not Recovered/Not Resolved]
  - Fatigue [Not Recovered/Not Resolved]
  - Dyspnoea [Not Recovered/Not Resolved]
